FAERS Safety Report 7198613-X (Version None)
Quarter: 2010Q4

REPORT INFORMATION
  Report Type: 
  Country: None (occurrence: None)
  Receive Date: 20101227
  Receipt Date: 20100902
  Transmission Date: 20110411
  Serious: No
  Sender: FDA-Public Use
  Company Number: US-ABBOTT-10P-163-0663900-00

PATIENT
  Sex: Male
  Weight: 104.42 kg

DRUGS (2)
  1. LUPRON DEPOT [Suspect]
     Indication: PROSTATE CANCER
     Route: 050
     Dates: start: 20070201, end: 20090101
  2. LUPRON DEPOT [Suspect]
     Route: 050
     Dates: start: 20090101

REACTIONS (3)
  - INCORRECT STORAGE OF DRUG [None]
  - POOR QUALITY DRUG ADMINISTERED [None]
  - PROSTATIC SPECIFIC ANTIGEN INCREASED [None]
